FAERS Safety Report 24184969 (Version 1)
Quarter: 2024Q3

REPORT INFORMATION
  Report Type: Spontaneous
  Country: CA (occurrence: CA)
  Receive Date: 20240807
  Receipt Date: 20240807
  Transmission Date: 20241016
  Serious: Yes (Hospitalization)
  Sender: GUERBET
  Company Number: CA-GUERBET / CANADA-CA-20240003

PATIENT
  Age: 61 Year
  Sex: Male

DRUGS (2)
  1. LIPIODOL [Suspect]
     Active Substance: ETHIODIZED OIL
     Indication: Therapeutic embolisation
     Route: 065
  2. HISTOACRYL [Suspect]
     Active Substance: ENBUCRILATE
     Indication: Therapeutic embolisation
     Route: 013

REACTIONS (3)
  - Pulmonary embolism [Recovered/Resolved]
  - Device dislocation [Recovered/Resolved]
  - Product use in unapproved indication [Recovered/Resolved]
